FAERS Safety Report 10929267 (Version 1)
Quarter: 2015Q1

REPORT INFORMATION
  Report Type: Spontaneous
  Country: US (occurrence: None)
  Receive Date: 20150318
  Receipt Date: 20150318
  Transmission Date: 20150721
  Serious: Yes (Disabling)
  Sender: FDA-Public Use
  Company Number: None

PATIENT
  Age: 61 Year
  Sex: Female
  Weight: 63.5 kg

DRUGS (3)
  1. MULTI VITAMIN [Concomitant]
     Active Substance: VITAMINS
  2. ALLEGRA [Concomitant]
     Active Substance: FEXOFENADINE HYDROCHLORIDE
  3. VALSARTAN 160 MG OHM [Suspect]
     Active Substance: VALSARTAN
     Indication: HYPERTENSION
     Dosage: TAKEN BY MOUTH
     Dates: start: 20150128, end: 20150316

REACTIONS (2)
  - Product substitution issue [None]
  - Cough [None]

NARRATIVE: CASE EVENT DATE: 20150316
